FAERS Safety Report 23144364 (Version 1)
Quarter: 2023Q4

REPORT INFORMATION
  Report Type: Spontaneous
  Country: US (occurrence: US)
  Receive Date: 20231103
  Receipt Date: 20231103
  Transmission Date: 20240109
  Serious: No
  Sender: FDA-Public Use
  Company Number: US-PFIZER INC-202300349824

PATIENT
  Age: 74 Year
  Sex: Female
  Weight: 52.16 kg

DRUGS (2)
  1. PRISTIQ EXTENDED-RELEASE [Suspect]
     Active Substance: DESVENLAFAXINE SUCCINATE
     Indication: Anxiety
     Dosage: 50 MG, 1X/DAY (SHE TOOK ONE AT BEDTIME)
     Route: 048
  2. PRISTIQ EXTENDED-RELEASE [Suspect]
     Active Substance: DESVENLAFAXINE SUCCINATE
     Indication: Depression
     Dosage: 25 MG, 1X/DAY (SHE TOOK IT ONE AT BEDTIME)
     Route: 048

REACTIONS (3)
  - Fatigue [Unknown]
  - Condition aggravated [Unknown]
  - Poor quality sleep [Unknown]
